FAERS Safety Report 8721566 (Version 3)
Quarter: 2012Q4

REPORT INFORMATION
  Report Type: 
  Country: US (occurrence: US)
  Receive Date: 20120814
  Receipt Date: 20120907
  Transmission Date: 20130627
  Serious: Yes (Death, Hospitalization, Other)
  Sender: FDA-Public Use
  Company Number: US-BIOGENIDEC-2012BI029995

PATIENT
  Age: 46 Year
  Sex: Female

DRUGS (1)
  1. TYSABRI [Suspect]
     Indication: MULTIPLE SCLEROSIS
     Route: 042
     Dates: start: 20100628, end: 20110525

REACTIONS (8)
  - Drug ineffective [Unknown]
  - Death [Fatal]
  - Heart rate increased [Fatal]
  - Wound infection [Recovered/Resolved]
  - Urinary tract infection [Recovered/Resolved]
  - Arteriosclerosis [Unknown]
  - Fall [Recovered/Resolved]
  - Ankle fracture [Unknown]
